FAERS Safety Report 11137073 (Version 2)
Quarter: 2015Q3

REPORT INFORMATION
  Report Type: Spontaneous
  Country: JP (occurrence: JP)
  Receive Date: 20150526
  Receipt Date: 20150706
  Transmission Date: 20151125
  Serious: Yes (Hospitalization, Other)
  Sender: FDA-Public Use
  Company Number: JP-GLAXOSMITHKLINE-JP2015JPN052948

PATIENT
  Age: 59 Year
  Sex: Female

DRUGS (5)
  1. LAMICTAL [Suspect]
     Active Substance: LAMOTRIGINE
     Indication: MANIA
     Dosage: 25 MG, QOD
     Route: 048
     Dates: start: 20150126, end: 20150213
  2. INVEGA [Concomitant]
     Active Substance: PALIPERIDONE
     Indication: SCHIZOPHRENIA
     Dosage: 6 MG, QD
     Dates: start: 20150109
  3. LAMICTAL [Suspect]
     Active Substance: LAMOTRIGINE
     Indication: BIPOLAR DISORDER
     Dosage: 25 MG, QD
     Route: 048
     Dates: start: 20150224, end: 20150402
  4. DEPAKENE [Suspect]
     Active Substance: VALPROIC ACID
     Indication: MANIA
     Dosage: 400 MG, TID
     Route: 048
     Dates: start: 20140913
  5. WYPAX [Concomitant]
     Active Substance: LORAZEPAM
     Indication: ANXIETY
     Dosage: 1 MG, QD
     Dates: start: 20150123

REACTIONS (5)
  - Rash generalised [Unknown]
  - Drug eruption [Recovered/Resolved]
  - Pruritus [Unknown]
  - Skin disorder [Recovering/Resolving]
  - Pyrexia [Unknown]

NARRATIVE: CASE EVENT DATE: 20150401
